FAERS Safety Report 4474758-X (Version None)
Quarter: 2004Q4

REPORT INFORMATION
  Report Type: 
  Country: None (occurrence: None)
  Receive Date: 20041012
  Receipt Date: 20041001
  Transmission Date: 20050328
  Serious: Yes (Other)
  Sender: FDA-Public Use
  Company Number: MK200410-0076-1

PATIENT
  Age: 25 Year
  Sex: Female

DRUGS (2)
  1. ANAFRANIL [Suspect]
     Indication: PANIC ATTACK
     Dosage: 25MG, DAILY
  2. CHLORDIAZEPOXIDE [Concomitant]

REACTIONS (4)
  - COMPLICATIONS OF MATERNAL EXPOSURE TO THERAPEUTIC DRUGS [None]
  - HABITUAL ABORTION [None]
  - MATERNAL DRUGS AFFECTING FOETUS [None]
  - PREGNANCY [None]
